FAERS Safety Report 12467073 (Version 1)
Quarter: 2016Q2

REPORT INFORMATION
  Report Type: Spontaneous
  Country: FR (occurrence: FR)
  Receive Date: 20160615
  Receipt Date: 20160615
  Transmission Date: 20160815
  Serious: Yes (Hospitalization)
  Sender: FDA-Public Use
  Company Number: FR-AUROBINDO-AUR-APL-2016-07536

PATIENT
  Age: 78 Year
  Sex: Male

DRUGS (5)
  1. VESICARE [Suspect]
     Active Substance: SOLIFENACIN SUCCINATE
     Indication: BENIGN PROSTATIC HYPERPLASIA
     Dosage: 1 DF, DAILY
     Route: 048
     Dates: start: 20151006, end: 20151013
  2. MIANSERINE [Concomitant]
     Active Substance: MIANSERIN HYDROCHLORIDE
     Indication: PRODUCT USED FOR UNKNOWN INDICATION
     Route: 065
  3. EXELON [Suspect]
     Active Substance: RIVASTIGMINE TARTRATE
     Indication: DEMENTIA ALZHEIMER^S TYPE
     Dosage: 1 DF, DAILY, 4.6 MG/24 HOURS
     Route: 003
     Dates: start: 20151006, end: 20151013
  4. FLUOXETINE CAPSULE, HARD 20 MG [Suspect]
     Active Substance: FLUOXETINE HYDROCHLORIDE
     Indication: DEPRESSION
     Dosage: 1 DF, DAILY
     Route: 048
     Dates: start: 20151006, end: 20151013
  5. STALEVO [Suspect]
     Active Substance: CARBIDOPA\ENTACAPONE\LEVODOPA
     Indication: PARKINSON^S DISEASE
     Dosage: 1 TABLET IN THE MORNING, AT MIDDAY, AT 04:00 P.M AND AT BEDTIME
     Route: 048

REACTIONS (8)
  - Confusional state [Unknown]
  - Disorientation [None]
  - Muscle rigidity [None]
  - Dyskinesia [None]
  - Agitation [Unknown]
  - Hallucination, visual [None]
  - Miosis [None]
  - Hallucination [Unknown]

NARRATIVE: CASE EVENT DATE: 20151013
